FAERS Safety Report 19866605 (Version 1)
Quarter: 2021Q3

REPORT INFORMATION
  Report Type: Spontaneous
  Country: US (occurrence: US)
  Receive Date: 20210921
  Receipt Date: 20210921
  Transmission Date: 20211014
  Serious: No
  Sender: FDA-Public Use
  Company Number: US-BRAINTREE LABORATORIES, INC.-2020BTE03065

PATIENT
  Age: 50 Year
  Sex: Female
  Weight: 63.5 kg

DRUGS (1)
  1. SUPREP BOWEL PREP [Suspect]
     Active Substance: MAGNESIUM SULFATE\POTASSIUM SULFATE\SODIUM SULFATE
     Indication: COLONOSCOPY
     Dosage: 0.5X 6 OZ. BOTTLE
     Route: 048
     Dates: start: 20201130, end: 20201130

REACTIONS (5)
  - Headache [None]
  - Body temperature decreased [None]
  - Chills [None]
  - Vomiting [None]
  - Cold sweat [None]

NARRATIVE: CASE EVENT DATE: 20201130
